FAERS Safety Report 19843404 (Version 1)
Quarter: 2021Q3

REPORT INFORMATION
  Report Type: Spontaneous
  Country: US (occurrence: US)
  Receive Date: 20210917
  Receipt Date: 20210917
  Transmission Date: 20211014
  Serious: No
  Sender: FDA-Public Use
  Company Number: US-AMGEN-USASP2021142453

PATIENT
  Age: 67 Year
  Sex: Female

DRUGS (4)
  1. OTEZLA [Suspect]
     Active Substance: APREMILAST
     Indication: PSORIASIS
     Dosage: 30 MILLIGRAM, BID
     Route: 048
     Dates: start: 20200124
  2. PREDNISONE. [Concomitant]
     Active Substance: PREDNISONE
  3. LODINE [Concomitant]
     Active Substance: ETODOLAC
  4. INDOCIN [Concomitant]
     Active Substance: INDOMETHACIN

REACTIONS (3)
  - Neck pain [Unknown]
  - Psoriasis [Unknown]
  - Joint swelling [Unknown]

NARRATIVE: CASE EVENT DATE: 2021
